FAERS Safety Report 6377279-2 (Version None)
Quarter: 2009Q3

REPORT INFORMATION
  Report Type: 
  Country: None (occurrence: None)
  Receive Date: 20090924
  Receipt Date: 20090924
  Transmission Date: 20100115
  Serious: Yes (Hospitalization)
  Sender: FDA-Public Use
  Company Number: None

PATIENT
  Sex: Male
  Weight: 75.5 kg

DRUGS (26)
  1. SORAFENIB [Suspect]
     Indication: MALIGNANT MELANOMA
     Dosage: 200 MG QAM PO  200 MG QPM PO
     Route: 048
     Dates: start: 20090901, end: 20090914
  2. NORVASC [Concomitant]
  3. LOVENOX [Concomitant]
  4. ZOSYN [Concomitant]
  5. OXYCODONE [Concomitant]
  6. TYLENOL (CAPLET) [Concomitant]
  7. ATAVOX [Concomitant]
  8. LIDOCAINE [Concomitant]
  9. VISIPAQUE [Concomitant]
  10. VERSED [Concomitant]
  11. FENTANYL [Concomitant]
  12. HEPARIN [Concomitant]
  13. PERCOCET [Concomitant]
  14. ZOFRAN [Concomitant]
  15. HEPARIN [Concomitant]
  16. LAXATIVE OF CHOICE [Concomitant]
  17. BISACODYL SUPP. [Concomitant]
  18. ZYDONE [Concomitant]
  19. LACTATED RINGER'S [Concomitant]
  20. ATRACURUM [Concomitant]
  21. CEFAZOLIN [Concomitant]
  22. DEXMEDETOMIDINE [Concomitant]
  23. EPHEDRINE [Concomitant]
  24. PHENYLEPHRINE [Concomitant]
  25. PROPOFOL [Concomitant]
  26. PROTAMINE SULFATE [Concomitant]

REACTIONS (2)
  - RASH [None]
  - URINARY TRACT INFECTION [None]
